FAERS Safety Report 8222939-1 (Version None)
Quarter: 2012Q1

REPORT INFORMATION
  Report Type: 
  Country: None (occurrence: None)
  Receive Date: 20120320
  Receipt Date: 20120314
  Transmission Date: 20120608
  Serious: Yes (Other)
  Sender: FDA-Public Use
  Company Number: PHFR2012GB001573

PATIENT
  Age: 75 Year
  Sex: Male

DRUGS (10)
  1. VERAPAMIL [Suspect]
  2. ATORVASTATIN [Suspect]
  3. PREDNISOLONE [Suspect]
  4. METFORMIN HCL [Suspect]
  5. WARFARIN SODIUM [Suspect]
  6. CYSTEINE HYDROCHLORIDE [Suspect]
  7. FORMOTEROL FUMARATE [Suspect]
  8. FUROSEMIDE [Suspect]
  9. RAMIPRIL [Suspect]
  10. ALBUTEROL [Suspect]

REACTIONS (1)
  - HALLUCINATION [None]
